FAERS Safety Report 14337897 (Version 1)
Quarter: 2017Q4

REPORT INFORMATION
  Report Type: Report from Study
  Country: CZ (occurrence: CZ)
  Receive Date: 20171229
  Receipt Date: 20171229
  Transmission Date: 20180321
  Serious: Yes (Other)
  Sender: FDA-Public Use
  Company Number: CZ-TEVA-2017-CZ-831239

PATIENT
  Age: 30 Year
  Sex: Female

DRUGS (6)
  1. PACLITAXEL. [Suspect]
     Active Substance: PACLITAXEL
     Dosage: 175 MG/M2 DAILY;
     Route: 065
  2. EPIRUBICIN [Concomitant]
     Active Substance: EPIRUBICIN
     Dates: start: 201406
  3. CYCLOPHOSPHAMIDE. [Concomitant]
     Active Substance: CYCLOPHOSPHAMIDE
  4. TRASTUZUMAB. [Suspect]
     Active Substance: TRASTUZUMAB
     Indication: BREAST CANCER
     Dosage: 3,6 MG/KG EVERY 21 DAYS ?RE-STARTED WITH 2,4 MG/KG EVERY 21 DAYS
     Route: 065
     Dates: start: 201602
  5. TRASTUZUMAB. [Suspect]
     Active Substance: TRASTUZUMAB
     Dosage: 3,6 MG/KG EVERY 21 DAYS ?RE-STARTED WITH 2,4 MG/KG EVERY 21 DAYS
     Route: 058
     Dates: start: 201503
  6. TRASTUZUMAB. [Suspect]
     Active Substance: TRASTUZUMAB
     Dosage: 3,6 MG/KG EVERY 21 DAYS ?RE-STARTED WITH 2,4 MG/KG EVERY 21 DAYS
     Route: 065

REACTIONS (2)
  - Product use in unapproved indication [Unknown]
  - Vena cava thrombosis [Unknown]
